FAERS Safety Report 18272907 (Version 1)
Quarter: 2020Q3

REPORT INFORMATION
  Report Type: Spontaneous
  Country: US (occurrence: US)
  Receive Date: 20200916
  Receipt Date: 20200916
  Transmission Date: 20201103
  Serious: Yes (Other)
  Sender: FDA-Public Use
  Company Number: None

PATIENT
  Age: 65 Year
  Sex: Female
  Weight: 48.15 kg

DRUGS (3)
  1. TIMOLOL MALEATE OPHTHALMIC SOLUTION 0.5% [Suspect]
     Active Substance: TIMOLOL MALEATE
     Indication: GLAUCOMA
     Dosage: ?          QUANTITY:1 DROP(S);?
     Route: 047
     Dates: start: 20200721, end: 20200819
  2. LUMIGAN [Concomitant]
     Active Substance: BIMATOPROST
  3. ATORVASTATIN [Concomitant]
     Active Substance: ATORVASTATIN

REACTIONS (4)
  - Blood pressure increased [None]
  - Palpitations [None]
  - Heart rate decreased [None]
  - Chest pain [None]

NARRATIVE: CASE EVENT DATE: 20200816
